FAERS Safety Report 24621913 (Version 1)
Quarter: 2024Q4

REPORT INFORMATION
  Report Type: Spontaneous
  Country: US (occurrence: US)
  Receive Date: 20241114
  Receipt Date: 20241114
  Transmission Date: 20250114
  Serious: No
  Sender: SANOFI AVENTIS
  Company Number: US-SA-2024SA329850

PATIENT
  Age: 10 Year
  Sex: Female
  Weight: 44.55 kg

DRUGS (2)
  1. DUPIXENT [Suspect]
     Active Substance: DUPILUMAB
     Dosage: 200 MG, QOW
     Route: 058
  2. CLARITIN [Concomitant]
     Active Substance: LORATADINE

REACTIONS (1)
  - Eye pruritus [Unknown]
